FAERS Safety Report 8992127 (Version 1)
Quarter: 2012Q4

REPORT INFORMATION
  Report Type: 
  Country: US (occurrence: US)
  Receive Date: 20121231
  Receipt Date: 20121231
  Transmission Date: 20130627
  Serious: No
  Sender: FDA-Public Use
  Company Number: US-BAYER-2012-136174

PATIENT
  Age: 71 Year
  Sex: Male
  Weight: 85.71 kg

DRUGS (13)
  1. ALEVE CAPLET/TABLET,MIDOL EXTENDED RELIEF CAPLET [Suspect]
     Dosage: 1 DF, QD
     Route: 048
     Dates: start: 201211, end: 20121224
  2. CELEBREX [Concomitant]
  3. INSULIN [Concomitant]
  4. TUMS [CALCIUM CARBONATE] [Concomitant]
  5. JANUMET [Concomitant]
  6. BENAZEPRIL [Concomitant]
  7. BABY ASPIRIN [Concomitant]
  8. SIMVASTATIN [Concomitant]
  9. GLIMEPIRIDE [Concomitant]
  10. GLIMERIDE [Concomitant]
  11. VITAMIN D [Concomitant]
  12. CENTRUM [Concomitant]
  13. CARISOPRODOL [Concomitant]

REACTIONS (1)
  - Dizziness [Recovered/Resolved]
